FAERS Safety Report 21321860 (Version 1)
Quarter: 2022Q3

REPORT INFORMATION
  Report Type: Report from Study
  Country: US (occurrence: US)
  Receive Date: 20220912
  Receipt Date: 20220912
  Transmission Date: 20221027
  Serious: No
  Sender: FDA-Public Use
  Company Number: US-NOVARTISTESTPH-NVSC2022US204647

PATIENT
  Age: 11 Year
  Sex: Female

DRUGS (1)
  1. COSENTYX [Suspect]
     Active Substance: SECUKINUMAB
     Indication: Psoriasis
     Dosage: 75 MG/KG, QMO
     Route: 058
     Dates: start: 20220114, end: 20220909

REACTIONS (2)
  - Arthralgia [Unknown]
  - Skin plaque [Unknown]

NARRATIVE: CASE EVENT DATE: 20220614
